FAERS Safety Report 11224323 (Version 1)
Quarter: 2015Q2

REPORT INFORMATION
  Report Type: Spontaneous
  Country: US (occurrence: US)
  Receive Date: 20150629
  Receipt Date: 20150629
  Transmission Date: 20150821
  Serious: No
  Sender: FDA-Public Use
  Company Number: US-BAYER-2015-362612

PATIENT
  Age: 66 Year
  Sex: Female
  Weight: 50 kg

DRUGS (4)
  1. MIRALAX [Suspect]
     Active Substance: POLYETHYLENE GLYCOL 3350
     Indication: CONSTIPATION
     Dosage: 1/2 DOSE, UNK
     Route: 048
     Dates: start: 20150528, end: 20150529
  2. MIRALAX [Suspect]
     Active Substance: POLYETHYLENE GLYCOL 3350
     Indication: CONSTIPATION
     Dosage: FULL DOSE, UNK
     Route: 048
     Dates: start: 20150530, end: 20150605
  3. MIRALAX [Suspect]
     Active Substance: POLYETHYLENE GLYCOL 3350
     Indication: CONSTIPATION
     Dosage: 1 DOSE, BID
     Route: 048
     Dates: start: 20150606
  4. METAMUCIL [Concomitant]
     Active Substance: PLANTAGO SEED
     Dosage: 1 DOSE, QD

REACTIONS (2)
  - Product use issue [Unknown]
  - Drug ineffective [Unknown]
